FAERS Safety Report 13524574 (Version 1)
Quarter: 2017Q2

REPORT INFORMATION
  Report Type: Spontaneous
  Country: CN (occurrence: CN)
  Receive Date: 20170508
  Receipt Date: 20170508
  Transmission Date: 20170830
  Serious: Yes (Other)
  Sender: FDA-Public Use
  Company Number: CN-IMPAX LABORATORIES, INC-2017-IPXL-01232

PATIENT
  Age: 61 Year
  Sex: Female

DRUGS (5)
  1. DIVALPROEX SODIUM ER [Suspect]
     Active Substance: DIVALPROEX SODIUM
     Dosage: 500 MG, 2 /DAY
     Route: 042
  2. DIVALPROEX SODIUM ER [Suspect]
     Active Substance: DIVALPROEX SODIUM
     Dosage: 800 MG, UNK
     Route: 042
  3. DIVALPROEX SODIUM ER [Suspect]
     Active Substance: DIVALPROEX SODIUM
     Dosage: 1200 MG, UNK
     Route: 042
  4. DIVALPROEX SODIUM ER [Suspect]
     Active Substance: DIVALPROEX SODIUM
     Dosage: 500 MG, 2 /DAY
     Route: 048
  5. DIVALPROEX SODIUM ER [Suspect]
     Active Substance: DIVALPROEX SODIUM
     Indication: SEIZURE
     Dosage: 500 MG, 2 /DAY
     Route: 065

REACTIONS (2)
  - Gastritis haemorrhagic [Recovered/Resolved]
  - Hyperammonaemic encephalopathy [Recovered/Resolved]
